FAERS Safety Report 6723039-X (Version None)
Quarter: 2010Q2

REPORT INFORMATION
  Report Type: 
  Country: None (occurrence: None)
  Receive Date: 20100513
  Receipt Date: 20100505
  Transmission Date: 20101027
  Serious: No
  Sender: FDA-Public Use
  Company Number: 2008BI026316

PATIENT
  Age: 40 Year
  Sex: Female

DRUGS (1)
  1. TYSABRI [Suspect]
     Indication: MULTIPLE SCLEROSIS
     Route: 042
     Dates: start: 20080909

REACTIONS (11)
  - ASTHENIA [None]
  - BLOOD POTASSIUM DECREASED [None]
  - CHEST PAIN [None]
  - FALL [None]
  - FATIGUE [None]
  - HYPOAESTHESIA [None]
  - LOSS OF CONTROL OF LEGS [None]
  - MUSCLE SPASMS [None]
  - OROPHARYNGEAL PAIN [None]
  - RHINORRHOEA [None]
  - SINUS CONGESTION [None]
